FAERS Safety Report 9684821 (Version 1)
Quarter: 2013Q4

REPORT INFORMATION
  Report Type: Spontaneous
  Country: AR (occurrence: AR)
  Receive Date: 20131112
  Receipt Date: 20131112
  Transmission Date: 20140711
  Serious: Yes (Other)
  Sender: FDA-Public Use
  Company Number: PHHY2013AR128798

PATIENT
  Sex: Female

DRUGS (2)
  1. TRILEPTAL [Suspect]
     Indication: EPILEPSY
     Dosage: 2 DF/DAY (0.5 TABLET IN THE MORNING, 0.5 TABLET AT NOON AND ONE TABLET AT NIGHT)
     Route: 048
  2. KARIDIUM                                /ARG/ [Concomitant]
     Indication: CONVULSION
     Dosage: 10 MG, BID
     Route: 048

REACTIONS (5)
  - Daydreaming [Unknown]
  - Dyskinesia [Unknown]
  - Brain oedema [Unknown]
  - Fall [Unknown]
  - Tremor [Unknown]
